FAERS Safety Report 22854496 (Version 5)
Quarter: 2023Q4

REPORT INFORMATION
  Report Type: Spontaneous
  Country: JP (occurrence: JP)
  Receive Date: 20230823
  Receipt Date: 20231012
  Transmission Date: 20240110
  Serious: Yes (Death, Life-Threatening, Other)
  Sender: FDA-Public Use
  Company Number: JP-UNITED THERAPEUTICS-UNT-2023-023910

PATIENT
  Age: 79 Year
  Sex: Male
  Weight: 56.3 kg

DRUGS (20)
  1. TYVASO [Suspect]
     Active Substance: TREPROSTINIL
     Indication: Pulmonary arterial hypertension
     Dosage: UNK
     Dates: start: 20230809, end: 202308
  2. TYVASO [Suspect]
     Active Substance: TREPROSTINIL
     Dosage: 18 ?G, QID
     Dates: start: 202308, end: 202308
  3. TYVASO [Suspect]
     Active Substance: TREPROSTINIL
     Dosage: 36 ?G, QID
     Dates: start: 202308, end: 20230818
  4. ADEMPAS [Concomitant]
     Active Substance: RIOCIGUAT
     Indication: Pulmonary arterial hypertension
     Dosage: 1.5 MG, QD
     Route: 065
     Dates: start: 20160201, end: 20160215
  5. ADEMPAS [Concomitant]
     Active Substance: RIOCIGUAT
     Dosage: 3 MG, QD
     Route: 065
     Dates: start: 20160215, end: 2016
  6. ADEMPAS [Concomitant]
     Active Substance: RIOCIGUAT
     Dosage: 4.5 MG, QD
     Route: 065
     Dates: start: 2016, end: 20160314
  7. ADEMPAS [Concomitant]
     Active Substance: RIOCIGUAT
     Dosage: 6 MG, QD
     Route: 065
     Dates: start: 20160314, end: 20160328
  8. ADEMPAS [Concomitant]
     Active Substance: RIOCIGUAT
     Dosage: 7.5 MG, QD
     Route: 065
     Dates: start: 20160328
  9. OPSUMIT [Concomitant]
     Active Substance: MACITENTAN
     Indication: Pulmonary arterial hypertension
     Dosage: 5 MG, QD
     Route: 065
     Dates: start: 20160215, end: 20160621
  10. OPSUMIT [Concomitant]
     Active Substance: MACITENTAN
     Dosage: 10 MG, QD
     Route: 065
     Dates: start: 20160621
  11. SELEXIPAG [Concomitant]
     Active Substance: SELEXIPAG
     Indication: Pulmonary arterial hypertension
     Dosage: UNK
     Route: 065
     Dates: start: 20220711, end: 20221017
  12. SELEXIPAG [Concomitant]
     Active Substance: SELEXIPAG
     Dosage: 0.8 MG
     Route: 065
     Dates: start: 20221017, end: 202308
  13. ILOPROST [Concomitant]
     Active Substance: ILOPROST
     Indication: Pulmonary arterial hypertension
     Dosage: 2.5 MCG / DOSE
     Route: 065
     Dates: start: 20161207, end: 202208
  14. ILOPROST [Concomitant]
     Active Substance: ILOPROST
     Dosage: 5 MCG, TID
     Route: 065
  15. TRICHLORMETHIAZIDE [Concomitant]
     Active Substance: TRICHLORMETHIAZIDE
     Indication: Product used for unknown indication
     Dosage: 1 MG, QD
     Route: 065
     Dates: start: 20220509, end: 2022
  16. TRICHLORMETHIAZIDE [Concomitant]
     Active Substance: TRICHLORMETHIAZIDE
     Dosage: 1 MG, QD
     Route: 065
     Dates: start: 20220812
  17. DIPHENHYDRAMINE [Concomitant]
     Active Substance: DIPHENHYDRAMINE
     Indication: Product used for unknown indication
     Dosage: UNK
     Route: 065
     Dates: start: 20230220
  18. DIFLUPREDNATE [Concomitant]
     Active Substance: DIFLUPREDNATE
     Indication: Pruritus
     Dosage: UNK
     Route: 003
     Dates: start: 20230417
  19. DIFLUPREDNATE [Concomitant]
     Active Substance: DIFLUPREDNATE
     Indication: Lichenoid keratosis
  20. DIFLUPREDNATE [Concomitant]
     Active Substance: DIFLUPREDNATE
     Indication: Eczema

REACTIONS (6)
  - Pulmonary hypertension [Fatal]
  - Cardio-respiratory arrest [Unknown]
  - Pulseless electrical activity [Unknown]
  - Dyspnoea [Unknown]
  - Fall [Recovered/Resolved]
  - Therapeutic response decreased [Unknown]

NARRATIVE: CASE EVENT DATE: 20230801
